FAERS Safety Report 7439482-X (Version None)
Quarter: 2011Q2

REPORT INFORMATION
  Report Type: 
  Country: None (occurrence: None)
  Receive Date: 20110427
  Receipt Date: 20110418
  Transmission Date: 20111010
  Serious: Yes (Hospitalization, Other)
  Sender: FDA-Public Use
  Company Number: US-JNJFOC-20110303635

PATIENT
  Sex: Female
  Weight: 71.22 kg

DRUGS (1)
  1. ORTHO EVRA [Suspect]
     Indication: CONTRACEPTION
     Route: 062

REACTIONS (7)
  - CEREBROVASCULAR ACCIDENT [None]
  - MIGRAINE [None]
  - NAUSEA [None]
  - DEPRESSION [None]
  - STRABISMUS [None]
  - VOMITING [None]
  - FACIAL PARESIS [None]
